FAERS Safety Report 9471091 (Version 2)
Quarter: 2013Q3

REPORT INFORMATION
  Report Type: Spontaneous
  Country: US (occurrence: None)
  Receive Date: 20130816
  Receipt Date: 20130830
  Transmission Date: 20140515
  Serious: Yes (Other)
  Sender: FDA-Public Use
  Company Number: ACO_37886_2013

PATIENT
  Age: 55 Year
  Sex: Male

DRUGS (1)
  1. AMPYRA (DALFAMPRIDINE) TABLET, 10MG [Suspect]
     Indication: MULTIPLE SCLEROSIS
     Route: 048
     Dates: start: 2013, end: 2013

REACTIONS (4)
  - Renal impairment [None]
  - Kidney infection [None]
  - Vomiting [None]
  - Drug ineffective [None]
